FAERS Safety Report 5029119-1 (Version None)
Quarter: 2006Q2

REPORT INFORMATION
  Report Type: 
  Country: None (occurrence: None)
  Receive Date: 20060613
  Receipt Date: 20060530
  Transmission Date: 20061013
  Serious: Yes (Hospitalization)
  Sender: FDA-Public Use
  Company Number: PAR_0430_2005

PATIENT
  Age: 51 Year
  Sex: Female
  Weight: 103 kg

DRUGS (3)
  1. CAPOTEN [Suspect]
     Indication: HYPERTENSION
     Dosage: 25 MG QDAY
     Dates: start: 20051102, end: 20051104
  2. CAPOTEN [Suspect]
     Indication: HYPERTENSION
     Dosage: VAR BID
     Dates: start: 20051104, end: 20051101
  3. CLORANA [Concomitant]

REACTIONS (3)
  - CONSTIPATION [None]
  - HYPERSENSITIVITY [None]
  - HYPERTHERMIA [None]
